FAERS Safety Report 5369794-5 (Version None)
Quarter: 2007Q2

REPORT INFORMATION
  Report Type: 
  Country: None (occurrence: None)
  Receive Date: 20070621
  Receipt Date: 20070614
  Transmission Date: 20071010
  Serious: Yes (Death)
  Sender: FDA-Public Use
  Company Number: 234866K07USA

PATIENT
  Age: 33 Year
  Sex: Male

DRUGS (3)
  1. REBIF [Suspect]
     Dosage: 44 MCG, 3 IN 1 WEEKS, SUBCUTANEOUS
     Route: 058
     Dates: end: 20070201
  2. HYDROXYCUT (ALL OTHER THERAPEUTIC PRODUCTS) [Suspect]
     Indication: MULTIPLE SCLEROSIS
     Dates: end: 20070201
  3. PSYCHIATRIC MEDICATIONS (ALL OTHER THERAPEUTIC PRODUCTS) [Suspect]
     Dates: end: 20070201

REACTIONS (3)
  - BIPOLAR DISORDER [None]
  - LABELLED DRUG-DRUG INTERACTION MEDICATION ERROR [None]
  - PNEUMONIA [None]
